FAERS Safety Report 23616475 (Version 3)
Quarter: 2024Q2

REPORT INFORMATION
  Report Type: Spontaneous
  Country: US (occurrence: US)
  Receive Date: 20240311
  Receipt Date: 20240422
  Transmission Date: 20240715
  Serious: Yes (Other)
  Sender: FDA-Public Use
  Company Number: US-PFIZER INC-202400053192

PATIENT
  Age: 66 Year
  Sex: Female
  Weight: 57.61 kg

DRUGS (2)
  1. ESTRING [Suspect]
     Active Substance: ESTRADIOL
     Indication: Autoimmune disorder
     Dosage: UNK
  2. LEVOTHYROXINE [Concomitant]
     Active Substance: LEVOTHYROXINE\LEVOTHYROXINE SODIUM
     Indication: Thyroid disorder
     Dosage: 30 MILLIGRAMS/ONE PILL DAILY

REACTIONS (6)
  - Vaginal infection [Unknown]
  - Urinary tract disorder [Unknown]
  - Wrong technique in device usage process [Unknown]
  - Device use confusion [Unknown]
  - Off label use [Unknown]
  - Drug ineffective for unapproved indication [Unknown]
